FAERS Safety Report 13338339 (Version 2)
Quarter: 2017Q2

REPORT INFORMATION
  Report Type: Spontaneous
  Country: US (occurrence: US)
  Receive Date: 20170315
  Receipt Date: 20170417
  Transmission Date: 20170830
  Serious: Yes (Hospitalization)
  Sender: FDA-Public Use
  Company Number: US-BAYER-2017-049223

PATIENT
  Age: 36 Year
  Sex: Female
  Weight: 80.73 kg

DRUGS (1)
  1. MIRENA [Suspect]
     Active Substance: LEVONORGESTREL
     Indication: CONTRACEPTION
     Dosage: 20 MCG/24HR, CONT
     Route: 015
     Dates: start: 20140116, end: 20150305

REACTIONS (9)
  - Anxiety [None]
  - Pelvic pain [None]
  - Headache [None]
  - Uterine perforation [None]
  - Abdominal pain lower [None]
  - Back pain [None]
  - Menorrhagia [None]
  - Device difficult to use [None]
  - Scar [None]

NARRATIVE: CASE EVENT DATE: 2015
